FAERS Safety Report 6901687-1 (Version None)
Quarter: 2010Q3

REPORT INFORMATION
  Report Type: 
  Country: None (occurrence: None)
  Receive Date: 20100803
  Receipt Date: 20080305
  Transmission Date: 20110219
  Serious: No
  Sender: FDA-Public Use
  Company Number: US-PFIZER INC-2008022181

PATIENT
  Sex: Female
  Weight: 68.2 kg

DRUGS (7)
  1. LYRICA [Suspect]
     Indication: FIBROMYALGIA
     Dates: start: 20080304
  2. AMITRIPTYLINE HYDROCHLORIDE [Interacting]
     Indication: DEPRESSION
  3. KLONOPIN [Interacting]
     Indication: DEPRESSION
  4. LEXAPRO [Interacting]
     Indication: DEPRESSION
  5. FENTANYL CITRATE [Concomitant]
  6. ZOCOR [Concomitant]
  7. DICLOFENAC [Concomitant]
     Indication: INFLAMMATION

REACTIONS (2)
  - DRUG INTERACTION [None]
  - FEELING DRUNK [None]
